FAERS Safety Report 8449808-6 (Version None)
Quarter: 2012Q2

REPORT INFORMATION
  Report Type: 
  Country: None (occurrence: None)
  Receive Date: 20120620
  Receipt Date: 20120607
  Transmission Date: 20120825
  Serious: Yes (Hospitalization, Other)
  Sender: FDA-Public Use
  Company Number: US-ELI_LILLY_AND_COMPANY-US201206003108

PATIENT
  Sex: Female

DRUGS (2)
  1. ZYPREXA [Suspect]
  2. STRATTERA [Suspect]

REACTIONS (4)
  - HOSPITALISATION [None]
  - BIPOLAR DISORDER [None]
  - MANIA [None]
  - WEIGHT INCREASED [None]
